FAERS Safety Report 5627983-6 (Version None)
Quarter: 2008Q1

REPORT INFORMATION
  Report Type: 
  Country: None (occurrence: None)
  Receive Date: 20080215
  Receipt Date: 20080212
  Transmission Date: 20080703
  Serious: Yes (Hospitalization, Other)
  Sender: FDA-Public Use
  Company Number: US-BRISTOL-MYERS SQUIBB COMPANY-14044929

PATIENT
  Age: 68 Year
  Sex: Male

DRUGS (14)
  1. DASATINIB [Suspect]
     Indication: COLORECTAL CANCER METASTATIC
     Dosage: INITIAL DOSE 07-DEC-2007.
     Route: 048
     Dates: start: 20071207, end: 20080109
  2. CETUXIMAB [Suspect]
     Indication: COLORECTAL CANCER METASTATIC
     Dosage: FREQUENCY:    ON DAY 1 + 8. INITIAL DOSE: 07-DEC-2007
     Route: 042
     Dates: start: 20071207, end: 20080109
  3. OXALIPLATIN [Suspect]
     Indication: COLORECTAL CANCER METASTATIC
     Dosage: FREQUENCY: ON DAY 1 INITIAL DOSE: 07-DEC-2007.
     Route: 042
     Dates: start: 20071207, end: 20080109
  4. LEUCOVORIN CALCIUM [Suspect]
     Indication: COLORECTAL CANCER METASTATIC
     Dosage: FREQUENCY: ON DAY 1 INITIAL DOSE: 07-DEC-2007.
     Route: 042
     Dates: start: 20071207, end: 20080109
  5. FLUOROURACIL [Suspect]
     Indication: COLORECTAL CANCER METASTATIC
     Dosage: FREQUENCY: ON DAY 1 INITIAL DOSE: 07-DEC-2007 2400MG/M2 OVER 48 HOURS
     Route: 042
     Dates: start: 20071207, end: 20080109
  6. ASPIRIN [Concomitant]
     Route: 048
  7. COMPAZINE [Concomitant]
  8. DARVON [Concomitant]
  9. EMEND [Concomitant]
  10. EMLA [Concomitant]
     Dosage: CREAM FORM
  11. HYDROCHLOROTHIAZIDE [Concomitant]
  12. METOPROLOL TARTRATE [Concomitant]
     Route: 048
  13. TYLENOL (CAPLET) [Concomitant]
  14. ASCORBIC ACID [Concomitant]

REACTIONS (7)
  - ATELECTASIS [None]
  - MALIGNANT NEOPLASM PROGRESSION [None]
  - NAUSEA [None]
  - PLEURAL EFFUSION [None]
  - PULMONARY EMBOLISM [None]
  - SMALL INTESTINAL OBSTRUCTION [None]
  - VOMITING [None]
